FAERS Safety Report 9787054 (Version 2)
Quarter: 2014Q2

REPORT INFORMATION
  Report Type: Spontaneous
  Country: US (occurrence: US)
  Receive Date: 20131227
  Receipt Date: 20140409
  Transmission Date: 20141212
  Serious: No
  Sender: FDA-Public Use
  Company Number: US-B.I. PHARMACEUTICALS,INC./RIDGEFIELD-2013-BI-42038BP

PATIENT
  Age: 69 Year
  Sex: Female
  Weight: 95 kg

DRUGS (8)
  1. METFORMIN [Concomitant]
     Indication: DIABETES MELLITUS
     Route: 048
  2. ASPIRIN [Concomitant]
     Indication: ANTICOAGULANT THERAPY
     Route: 048
  3. ADVAIR [Concomitant]
     Indication: CHRONIC OBSTRUCTIVE PULMONARY DISEASE
     Route: 055
  4. COMBIVENT [Suspect]
     Indication: CHRONIC OBSTRUCTIVE PULMONARY DISEASE
     Dosage: STRENGTH: 20 MCG / 100 MCG; DAILY DOSE: 160 MCG/800 MCG
     Route: 055
     Dates: start: 201307
  5. FEOSOL [Concomitant]
     Indication: BLOOD IRON DECREASED
     Dosage: 65 MG
     Route: 048
     Dates: start: 2012
  6. ALBUTEROL SULFATE [Concomitant]
     Indication: CHRONIC OBSTRUCTIVE PULMONARY DISEASE
     Route: 055
     Dates: start: 2009
  7. LIPITOR [Concomitant]
     Indication: BLOOD CHOLESTEROL INCREASED
     Dosage: 80 MG
     Route: 048
     Dates: start: 2007
  8. NIFEDIPINE [Concomitant]
     Indication: CARDIAC FAILURE CONGESTIVE
     Dosage: 30 MG
     Route: 048
     Dates: start: 1993

REACTIONS (3)
  - Dyspnoea [Not Recovered/Not Resolved]
  - Prescribed overdose [Not Recovered/Not Resolved]
  - Product quality issue [Recovered/Resolved]
